FAERS Safety Report 8926052 (Version 1)
Quarter: 2012Q4

REPORT INFORMATION
  Report Type: 
  Country: GB (occurrence: GB)
  Receive Date: 20121126
  Receipt Date: 20121126
  Transmission Date: 20130627
  Serious: Yes (Other)
  Sender: FDA-Public Use
  Company Number: GB-MYLANLABS-2012S1023635

PATIENT
  Age: 26 Year
  Sex: Female

DRUGS (1)
  1. QUETIAPINE [Suspect]
     Indication: PSYCHOTIC DISORDER
     Route: 048

REACTIONS (3)
  - Treatment noncompliance [Unknown]
  - Drug withdrawal syndrome [Unknown]
  - Hypersomnia [Unknown]
